FAERS Safety Report 11909176 (Version 1)
Quarter: 2016Q1

REPORT INFORMATION
  Report Type: Spontaneous
  Country: US (occurrence: US)
  Receive Date: 20160112
  Receipt Date: 20160112
  Transmission Date: 20160526
  Serious: Yes (Hospitalization)
  Sender: FDA-Public Use
  Company Number: US-STRIDES ARCOLAB LIMITED-2016SP000030

PATIENT

DRUGS (2)
  1. TACROLIMUS. [Suspect]
     Active Substance: TACROLIMUS
     Indication: IMMUNOSUPPRESSION
     Dosage: UNK
     Route: 065
  2. MYCOPHENOLATE MOFETIL. [Suspect]
     Active Substance: MYCOPHENOLATE MOFETIL
     Indication: IMMUNOSUPPRESSION
     Dosage: 1.5 G, QD
     Route: 065

REACTIONS (17)
  - VIth nerve paralysis [Unknown]
  - Dysphonia [Unknown]
  - Cough [Unknown]
  - Sneezing [Unknown]
  - Diplopia [Unknown]
  - Dysphagia [Unknown]
  - Respiratory tract infection viral [Unknown]
  - Urinary retention [Unknown]
  - Ataxia [Unknown]
  - Lethargy [Unknown]
  - Paralysis [Not Recovered/Not Resolved]
  - Dysarthria [Unknown]
  - Areflexia [Unknown]
  - Facial paresis [Not Recovered/Not Resolved]
  - Gait disturbance [Recovered/Resolved]
  - Asthenia [Unknown]
  - Pyrexia [Unknown]
